FAERS Safety Report 8195633-3 (Version None)
Quarter: 2012Q1

REPORT INFORMATION
  Report Type: 
  Country: None (occurrence: None)
  Receive Date: 20120308
  Receipt Date: 20120301
  Transmission Date: 20120608
  Serious: Yes (Other)
  Sender: FDA-Public Use
  Company Number: US-PFIZER INC-2012056546

PATIENT
  Age: 70 Year
  Sex: Female

DRUGS (1)
  1. EPIPEN [Suspect]

REACTIONS (3)
  - INJURY ASSOCIATED WITH DEVICE [None]
  - ACCIDENTAL EXPOSURE [None]
  - PAIN IN EXTREMITY [None]
